FAERS Safety Report 5685363-1 (Version None)
Quarter: 2008Q1

REPORT INFORMATION
  Report Type: 
  Country: None (occurrence: None)
  Receive Date: 20080328
  Receipt Date: 20080325
  Transmission Date: 20080703
  Serious: Yes (Life-Threatening, Hospitalization)
  Sender: FDA-Public Use
  Company Number: FR-GILEAD-2008-0015870

PATIENT
  Age: 42 Year
  Sex: Male
  Weight: 40 kg

DRUGS (2)
  1. TRUVADA [Suspect]
     Route: 048
     Dates: start: 20070901, end: 20080301
  2. LOPINAVIR [Suspect]
     Indication: HIV INFECTION

REACTIONS (6)
  - ASCITES [None]
  - CARDIAC FAILURE [None]
  - JAUNDICE [None]
  - OEDEMA PERIPHERAL [None]
  - PULMONARY OEDEMA [None]
  - WEIGHT INCREASED [None]
